FAERS Safety Report 6041114-2 (Version None)
Quarter: 2009Q1

REPORT INFORMATION
  Report Type: 
  Country: None (occurrence: None)
  Receive Date: 20090116
  Receipt Date: 20080826
  Transmission Date: 20090719
  Serious: No
  Sender: FDA-Public Use
  Company Number: US-BRISTOL-MYERS SQUIBB COMPANY-14315154

PATIENT
  Age: 87 Year
  Sex: Female
  Weight: 51 kg

DRUGS (6)
  1. ABILIFY [Suspect]
     Dates: start: 20080701, end: 20080822
  2. SEROQUEL [Suspect]
     Indication: AGITATION
  3. ASPIRIN [Concomitant]
  4. ZOCOR [Concomitant]
  5. LOPRESSOR [Concomitant]
     Indication: HYPERTENSION
  6. ANTIBIOTIC [Concomitant]
     Route: 042

REACTIONS (5)
  - ANOREXIA [None]
  - DROOLING [None]
  - GAIT DISTURBANCE [None]
  - HYPOTENSION [None]
  - LETHARGY [None]
